FAERS Safety Report 4318510-4 (Version None)
Quarter: 2004Q1

REPORT INFORMATION
  Report Type: 
  Country: None (occurrence: None)
  Receive Date: 20040318
  Receipt Date: 20040312
  Transmission Date: 20041129
  Serious: Yes (Hospitalization)
  Sender: FDA-Public Use
  Company Number: 200410991FR

PATIENT
  Age: 48 Year
  Sex: Male

DRUGS (3)
  1. LOVENOX [Suspect]
     Indication: ATRIAL FIBRILLATION
     Route: 058
     Dates: start: 20040207
  2. PREVISCAN 20 MG [Concomitant]
     Indication: ATRIAL FIBRILLATION
     Route: 048
     Dates: start: 20040207, end: 20040211
  3. COLCHICINE [Concomitant]
     Indication: BEHCET'S SYNDROME

REACTIONS (1)
  - HEPATITIS [None]
